FAERS Safety Report 8946936 (Version 2)
Quarter: 2013Q2

REPORT INFORMATION
  Report Type: Spontaneous
  Country: US (occurrence: US)
  Receive Date: 20121205
  Receipt Date: 20130501
  Transmission Date: 20140414
  Serious: No
  Sender: FDA-Public Use
  Company Number: US-009507513-1212USA001731

PATIENT
  Sex: Female

DRUGS (3)
  1. CLARITIN REDITABS [Suspect]
     Indication: RHINORRHOEA
     Dosage: 10 MG, BID
     Route: 048
     Dates: start: 20121114
  2. CLARITIN REDITABS [Suspect]
     Indication: HYPERSENSITIVITY
  3. CLARITIN REDITABS [Suspect]
     Indication: MEDICAL OBSERVATION

REACTIONS (1)
  - Overdose [Recovered/Resolved]
